FAERS Safety Report 6440410-4 (Version None)
Quarter: 2009Q4

REPORT INFORMATION
  Report Type: 
  Country: None (occurrence: None)
  Receive Date: 20091113
  Receipt Date: 20091106
  Transmission Date: 20100525
  Serious: Yes (Other)
  Sender: FDA-Public Use
  Company Number: PHHY2009MX48924

PATIENT
  Age: 31 Year
  Sex: Female

DRUGS (2)
  1. TRILEPTAL [Suspect]
     Indication: EPILEPSY
     Dosage: 600 MG, BID
     Dates: start: 20060101
  2. SENASST [Concomitant]
     Indication: EPILEPSY
     Dosage: 2 TABLETS PER DAY

REACTIONS (3)
  - BONE PAIN [None]
  - CONVULSION [None]
  - NERVOUS SYSTEM DISORDER [None]
